FAERS Safety Report 22727490 (Version 2)
Quarter: 2025Q3

REPORT INFORMATION
  Report Type: Spontaneous
  Country: QA (occurrence: QA)
  Receive Date: 20230720
  Receipt Date: 20250703
  Transmission Date: 20251021
  Serious: Yes (Death, Hospitalization)
  Sender: Steriscience PTE
  Company Number: QA-STERISCIENCE B.V.-2023-ST-001708

PATIENT
  Age: 52 Year
  Sex: Male

DRUGS (17)
  1. ONDANSETRON [Suspect]
     Active Substance: ONDANSETRON
     Indication: Metastases to meninges
     Route: 065
     Dates: start: 201910
  2. DEXAMETHASONE [Suspect]
     Active Substance: DEXAMETHASONE
     Indication: Metastases to meninges
     Route: 065
     Dates: start: 201910
  3. ACETAMINOPHEN [Suspect]
     Active Substance: ACETAMINOPHEN
     Indication: Metastases to meninges
     Route: 065
     Dates: start: 201910
  4. METHOTREXATE [Suspect]
     Active Substance: METHOTREXATE
     Indication: Non-small cell lung cancer
     Dosage: UNK, BIWEEKLY
     Route: 037
     Dates: start: 2020
  5. METHOTREXATE [Suspect]
     Active Substance: METHOTREXATE
     Indication: Adenocarcinoma
  6. AFATINIB [Concomitant]
     Active Substance: AFATINIB
     Indication: Non-small cell lung cancer
     Route: 065
     Dates: start: 201808, end: 2018
  7. AFATINIB [Concomitant]
     Active Substance: AFATINIB
     Indication: Adenocarcinoma
  8. CETUXIMAB [Concomitant]
     Active Substance: CETUXIMAB
     Indication: Non-small cell lung cancer
     Route: 065
     Dates: start: 201808, end: 2018
  9. CETUXIMAB [Concomitant]
     Active Substance: CETUXIMAB
     Indication: Adenocarcinoma
  10. ERLOTINIB [Concomitant]
     Active Substance: ERLOTINIB
     Indication: Non-small cell lung cancer
     Route: 065
  11. ERLOTINIB [Concomitant]
     Active Substance: ERLOTINIB
     Indication: Adenocarcinoma
     Route: 065
  12. CARBOPLATIN [Concomitant]
     Active Substance: CARBOPLATIN
     Indication: Non-small cell lung cancer
     Route: 065
     Dates: start: 2018
  13. CARBOPLATIN [Concomitant]
     Active Substance: CARBOPLATIN
     Indication: Adenocarcinoma
  14. PEMETREXED [Concomitant]
     Active Substance: PEMETREXED
     Indication: Non-small cell lung cancer
     Route: 065
     Dates: start: 2018
  15. PEMETREXED [Concomitant]
     Active Substance: PEMETREXED
     Indication: Adenocarcinoma
  16. OSIMERTINIB [Concomitant]
     Active Substance: OSIMERTINIB
     Indication: Non-small cell lung cancer
     Route: 065
     Dates: start: 201910, end: 202002
  17. OSIMERTINIB [Concomitant]
     Active Substance: OSIMERTINIB
     Indication: Adenocarcinoma

REACTIONS (1)
  - Drug ineffective for unapproved indication [Fatal]
